FAERS Safety Report 6218828-4 (Version None)
Quarter: 2009Q2

REPORT INFORMATION
  Report Type: 
  Country: None (occurrence: None)
  Receive Date: 20090608
  Receipt Date: 20090526
  Transmission Date: 20091009
  Serious: Yes (Hospitalization, Disabling)
  Sender: FDA-Public Use
  Company Number: FR-MYLANLABS-2009S1009132

PATIENT
  Age: 35 Year
  Sex: Male

DRUGS (2)
  1. ZOLPIDEM TARTRATE [Suspect]
     Indication: DRUG ABUSE
     Dosage: UNINTENTIONAL INTRA-ARTERIAL INJECTION OF A CRUSHED TABLET
     Route: 013
  2. METHADONE HCL [Concomitant]
     Indication: DRUG DEPENDENCE

REACTIONS (2)
  - INTENTIONAL DRUG MISUSE [None]
  - ISCHAEMIA [None]
